FAERS Safety Report 4784510-3 (Version None)
Quarter: 2005Q3

REPORT INFORMATION
  Report Type: 
  Country: None (occurrence: None)
  Receive Date: 20050930
  Receipt Date: 20041203
  Transmission Date: 20060218
  Serious: Yes (Other)
  Sender: FDA-Public Use
  Company Number: GB-GLAXOSMITHKLINE-B0361213A

PATIENT
  Sex: Male

DRUGS (2)
  1. PAROXETINE HCL [Suspect]
     Route: 065
     Dates: start: 20010101
  2. ALCOHOL [Concomitant]
     Route: 065

REACTIONS (9)
  - ARTHRALGIA [None]
  - ASTHENIA [None]
  - DRUG WITHDRAWAL SYNDROME [None]
  - EJACULATION FAILURE [None]
  - HALLUCINATION, AUDITORY [None]
  - INJURY [None]
  - OVERDOSE [None]
  - PARAESTHESIA [None]
  - SELF-INJURIOUS IDEATION [None]
